FAERS Safety Report 20569569 (Version 3)
Quarter: 2022Q2

REPORT INFORMATION
  Report Type: Spontaneous
  Country: EG (occurrence: EG)
  Receive Date: 20220309
  Receipt Date: 20220509
  Transmission Date: 20220721
  Serious: Yes (Hospitalization, Other)
  Sender: FDA-Public Use
  Company Number: EG-NOVOPROD-896378

PATIENT
  Age: 61 Year
  Sex: Male
  Weight: 88 kg

DRUGS (10)
  1. NOVORAPID [Suspect]
     Active Substance: INSULIN ASPART
     Dosage: 15 IU PER EACH MEAL FOR 10 DAYS
     Route: 058
  2. NOVORAPID [Suspect]
     Active Substance: INSULIN ASPART
     Indication: Type 2 diabetes mellitus
     Dosage: 10 OR 15 U AT AFTERNOON
     Route: 058
  3. INSULIN HUMAN [Suspect]
     Active Substance: INSULIN HUMAN
     Indication: Type 2 diabetes mellitus
     Dosage: 55 IU, QD
     Route: 058
  4. INSULIN HUMAN [Suspect]
     Active Substance: INSULIN HUMAN
     Dosage: 40 IU, QD (FOR ONE MONTH)
     Route: 058
  5. INSULIN HUMAN [Suspect]
     Active Substance: INSULIN HUMAN
     Dosage: 30 IU, QD
     Route: 058
  6. PLAVIX [Concomitant]
     Active Substance: CLOPIDOGREL BISULFATE
     Indication: Product used for unknown indication
     Dosage: 1 TAB IN EVENING
     Route: 065
     Dates: start: 202107
  7. ASPIRIN [Concomitant]
     Active Substance: ASPIRIN
     Indication: Product used for unknown indication
     Dosage: 1 TAB IN MORNING
     Route: 065
  8. BISOPROLOL FUMARATE [Concomitant]
     Active Substance: BISOPROLOL FUMARATE
     Indication: Hypertension
     Dosage: 5 MG, QD ( 1 TAB AFTER LUNCH)
     Route: 065
  9. AMLODIPINE BESYLATE\PERINDOPRIL ERBUMINE [Concomitant]
     Active Substance: AMLODIPINE BESYLATE\PERINDOPRIL ERBUMINE
     Indication: Hypertension
     Dosage: 1 TAB IN THE MORNING BEFORE BREAKFAST
     Route: 065
  10. JANUMET [Concomitant]
     Active Substance: METFORMIN HYDROCHLORIDE\SITAGLIPTIN PHOSPHATE
     Indication: Type 2 diabetes mellitus
     Dosage: 1 TAB AFTERNOON
     Route: 065

REACTIONS (5)
  - Cardiac operation [Recovered/Resolved]
  - Postoperative wound infection [Recovered/Resolved]
  - Hyperglycaemia [Recovered/Resolved]
  - Injection site extravasation [Unknown]
  - Increased insulin requirement [Unknown]

NARRATIVE: CASE EVENT DATE: 20210928
